FAERS Safety Report 11233106 (Version 3)
Quarter: 2015Q4

REPORT INFORMATION
  Report Type: Spontaneous
  Country: GB (occurrence: GB)
  Receive Date: 20150701
  Receipt Date: 20151203
  Transmission Date: 20160304
  Serious: Yes (Hospitalization, Other)
  Sender: FDA-Public Use
  Company Number: GB-GLAXOSMITHKLINE-GB2015082559

PATIENT
  Age: 59 Year
  Sex: Male

DRUGS (5)
  1. ATORVASTATIN [Concomitant]
     Active Substance: ATORVASTATIN
     Dosage: AT NIGHT
     Route: 048
  2. ZANTAC [Suspect]
     Active Substance: RANITIDINE HYDROCHLORIDE
     Indication: PRODUCT USED FOR UNKNOWN INDICATION
     Dosage: 150 MG, BID
     Route: 048
  3. GLICLAZIDE [Concomitant]
     Active Substance: GLICLAZIDE
     Dosage: 40 MG, BID
     Route: 048
  4. ATORVASTATIN [Concomitant]
     Active Substance: ATORVASTATIN
     Dosage: AT NIGHT
     Route: 048
  5. METFORMIN [Concomitant]
     Active Substance: METFORMIN HYDROCHLORIDE
     Indication: DIABETES MELLITUS
     Route: 048

REACTIONS (32)
  - Liver function test abnormal [Recovering/Resolving]
  - Renal impairment [Recovered/Resolved]
  - Duodenal ulcer [Recovering/Resolving]
  - Malaise [Recovering/Resolving]
  - Stevens-Johnson syndrome [Recovered/Resolved]
  - Atypical pneumonia [Recovering/Resolving]
  - Pain [Recovering/Resolving]
  - White blood cell count increased [Recovering/Resolving]
  - Dizziness [Recovering/Resolving]
  - Balance disorder [Recovering/Resolving]
  - Eosinophil count increased [Recovered/Resolved]
  - Influenza like illness [Recovering/Resolving]
  - Conjunctival disorder [Recovering/Resolving]
  - Hyponatraemia [Recovering/Resolving]
  - Hypoalbuminaemia [Recovering/Resolving]
  - Atelectasis [Recovering/Resolving]
  - Rash maculo-papular [Recovering/Resolving]
  - Neuropathy peripheral [Recovered/Resolved]
  - Melaena [Recovering/Resolving]
  - Jaundice [Recovering/Resolving]
  - Respiratory failure [Recovering/Resolving]
  - Hepatic function abnormal [Recovering/Resolving]
  - Dyspnoea [Recovering/Resolving]
  - Atrial fibrillation [Recovering/Resolving]
  - Pleural effusion [Recovering/Resolving]
  - Lethargy [Recovering/Resolving]
  - Nausea [Recovering/Resolving]
  - Sepsis [Recovering/Resolving]
  - Erythema multiforme [Recovered/Resolved]
  - Gastritis [Recovering/Resolving]
  - Biliary sepsis [Recovering/Resolving]
  - Vomiting [Recovering/Resolving]

NARRATIVE: CASE EVENT DATE: 20150513
